FAERS Safety Report 7911539-6 (Version None)
Quarter: 2011Q4

REPORT INFORMATION
  Report Type: 
  Country: None (occurrence: None)
  Receive Date: 20111114
  Receipt Date: 20111101
  Transmission Date: 20120403
  Serious: Yes (Other)
  Sender: FDA-Public Use
  Company Number: US-ELI_LILLY_AND_COMPANY-US201111000696

PATIENT
  Age: 28 Year
  Sex: Female

DRUGS (1)
  1. ZYPREXA [Suspect]
     Indication: BIPOLAR DISORDER
     Dosage: 20 MG, QD

REACTIONS (4)
  - CONVULSION [None]
  - PSEUDOCYST [None]
  - HEADACHE [None]
  - WEIGHT INCREASED [None]
